FAERS Safety Report 9415762 (Version 1)
Quarter: 2013Q3

REPORT INFORMATION
  Report Type: Report from Study
  Country: IE (occurrence: IE)
  Receive Date: 20130724
  Receipt Date: 20130724
  Transmission Date: 20140515
  Serious: Yes (Other)
  Sender: FDA-Public Use
  Company Number: IE-ABBOTT-13X-229-1123055-00

PATIENT
  Age: 35 Year
  Sex: Female

DRUGS (3)
  1. SODIUM VALPROATE [Suspect]
     Indication: PRODUCT USED FOR UNKNOWN INDICATION
     Dosage: UNKOWN;UNKNOWN
  2. PHENELZINE [Suspect]
     Indication: PRODUCT USED FOR UNKNOWN INDICATION
     Dosage: UNKOWN;UNKNOWN
  3. ALL OTHER THERAPEUTIC PRODUCTS [Suspect]
     Indication: NASOPHARYNGITIS
     Dosage: UNKOWN;UNKNOWN

REACTIONS (7)
  - Serotonin syndrome [Unknown]
  - Coma [Unknown]
  - Hypotonia [Unknown]
  - Muscle rigidity [Unknown]
  - Dyskinesia [Unknown]
  - Flushing [Unknown]
  - Dry skin [Unknown]
